FAERS Safety Report 22236800 (Version 1)
Quarter: 2023Q2

REPORT INFORMATION
  Report Type: Spontaneous
  Country: US (occurrence: US)
  Receive Date: 20230420
  Receipt Date: 20230420
  Transmission Date: 20230721
  Serious: No
  Sender: FDA-Public Use
  Company Number: US-ALLERGAN-2303689US

PATIENT
  Sex: Male
  Weight: 82 kg

DRUGS (1)
  1. CYCLOSPORINE [Suspect]
     Active Substance: CYCLOSPORINE
     Indication: Dry eye
     Dosage: ONE EVERY TWELVE HOURS, TWICE A DAY
     Dates: start: 20230127

REACTIONS (5)
  - Eye irritation [Not Recovered/Not Resolved]
  - Foreign body sensation in eyes [Unknown]
  - Product physical consistency issue [Unknown]
  - Ocular hyperaemia [Unknown]
  - Eye swelling [Unknown]
